FAERS Safety Report 16981955 (Version 2)
Quarter: 2019Q4

REPORT INFORMATION
  Report Type: Spontaneous
  Country: FR (occurrence: FR)
  Receive Date: 20191101
  Receipt Date: 20191105
  Transmission Date: 20200122
  Serious: Yes (Hospitalization)
  Sender: FDA-Public Use
  Company Number: FR-ORION CORPORATION ORION PHARMA-19_00007351

PATIENT
  Age: 76 Year
  Sex: Male
  Weight: 70.7 kg

DRUGS (10)
  1. IMETH [Suspect]
     Active Substance: METHOTREXATE SODIUM
     Indication: RHEUMATOID ARTHRITIS
     Dosage: STRENGTH: 2.5MG
     Route: 048
     Dates: start: 20190701, end: 20190917
  2. KLIPAL [Concomitant]
     Active Substance: ACETAMINOPHEN\CODEINE PHOSPHATE
     Route: 065
  3. TENORMINE 50 MG, COMPRIM? PELLICUL? S?CABLE [Concomitant]
     Active Substance: ATENOLOL
     Dosage: STRENGTH: 50 MG
     Route: 065
  4. PREDNISONE. [Concomitant]
     Active Substance: PREDNISONE
     Route: 065
  5. FLECAINIDE (ACETATE DE) [Concomitant]
     Active Substance: FLECAINIDE
     Route: 065
  6. SPECIAFOLDINE [Concomitant]
     Active Substance: FOLIC ACID
     Route: 065
  7. ATARAX [Concomitant]
     Active Substance: HYDROXYZINE HYDROCHLORIDE
     Dosage: STRENGTH: 25MG
     Route: 065
  8. TAHOR [Concomitant]
     Active Substance: ATORVASTATIN CALCIUM
     Dosage: STRENGTH: 20MG
     Route: 065
  9. EXJADE [Concomitant]
     Active Substance: DEFERASIROX
     Dosage: STRENGTH: 360MG
     Route: 065
  10. ACENOCOUMAROL [Concomitant]
     Active Substance: ACENOCOUMAROL
     Route: 065

REACTIONS (1)
  - Purpura [Recovering/Resolving]

NARRATIVE: CASE EVENT DATE: 20190715
